FAERS Safety Report 14223432 (Version 1)
Quarter: 2017Q4

REPORT INFORMATION
  Report Type: Report from Study
  Country: None (occurrence: US)
  Receive Date: 20171124
  Receipt Date: 20171124
  Transmission Date: 20180321
  Serious: Yes (Other)
  Sender: FDA-Public Use
  Company Number: US-ABBVIE-17K-163-2169290-00

PATIENT
  Sex: Female

DRUGS (1)
  1. HUMIRA [Suspect]
     Active Substance: ADALIMUMAB
     Indication: COLITIS
     Route: 058

REACTIONS (6)
  - Impaired healing [Not Recovered/Not Resolved]
  - Fracture malunion [Not Recovered/Not Resolved]
  - Post procedural swelling [Unknown]
  - Postoperative wound infection [Unknown]
  - Off label use [Unknown]
  - Foot fracture [Not Recovered/Not Resolved]
